FAERS Safety Report 6298936-2 (Version None)
Quarter: 2009Q3

REPORT INFORMATION
  Report Type: 
  Country: None (occurrence: None)
  Receive Date: 20090804
  Receipt Date: 20090724
  Transmission Date: 20100115
  Serious: Yes (Hospitalization, Other)
  Sender: FDA-Public Use
  Company Number: 84441

PATIENT
  Age: 25 Year
  Sex: Male

DRUGS (1)
  1. BUPRENORPHINE HCL INJ. 0 [Suspect]

REACTIONS (23)
  - ASCITES [None]
  - BLOOD ALBUMIN DECREASED [None]
  - CARDIAC FAILURE [None]
  - CARDIAC FAILURE CONGESTIVE [None]
  - CARDIAC VALVE VEGETATION [None]
  - CONVULSION [None]
  - DEVICE FAILURE [None]
  - DRUG ABUSE [None]
  - DYSARTHRIA [None]
  - EMBOLIC CEREBRAL INFARCTION [None]
  - ENDOCARDITIS BACTERIAL [None]
  - HAEMOLYTIC ANAEMIA [None]
  - HEMIPARESIS [None]
  - HEPATOMEGALY [None]
  - MEDICAL DEVICE COMPLICATION [None]
  - MITRAL VALVE INCOMPETENCE [None]
  - MYCOTIC ANEURYSM [None]
  - OEDEMA PERIPHERAL [None]
  - POST PROCEDURAL COMPLICATION [None]
  - PROTEIN-LOSING GASTROENTEROPATHY [None]
  - PSEUDOMEMBRANOUS COLITIS [None]
  - STAPHYLOCOCCAL BACTERAEMIA [None]
  - TRICUSPID VALVE INCOMPETENCE [None]
